FAERS Safety Report 24256878 (Version 1)
Quarter: 2024Q3

REPORT INFORMATION
  Report Type: Spontaneous
  Country: DE (occurrence: DE)
  Receive Date: 20240828
  Receipt Date: 20240828
  Transmission Date: 20241016
  Serious: Yes (Other)
  Sender: ROCHE
  Company Number: DE-ROCHE-10000064762

PATIENT
  Age: 47 Year
  Sex: Female

DRUGS (1)
  1. ADO-TRASTUZUMAB EMTANSINE [Suspect]
     Active Substance: ADO-TRASTUZUMAB EMTANSINE
     Indication: Breast cancer
     Route: 065

REACTIONS (4)
  - Polyneuropathy [Unknown]
  - Hypoaesthesia [Unknown]
  - Paraesthesia [Unknown]
  - Insomnia [Unknown]
